FAERS Safety Report 4983066-X (Version None)
Quarter: 2006Q2

REPORT INFORMATION
  Report Type: 
  Country: None (occurrence: None)
  Receive Date: 20060426
  Receipt Date: 20060329
  Transmission Date: 20061013
  Serious: Yes (Hospitalization)
  Sender: FDA-Public Use
  Company Number: US-BRISTOL-MYERS SQUIBB COMPANY-13331681

PATIENT
  Age: 72 Year
  Sex: Female

DRUGS (20)
  1. ERBITUX [Suspect]
     Indication: NON-SMALL CELL LUNG CANCER
     Dosage: CYCLE 2 DAY 1. THERAPY START DATE 27-FEB-2006.
     Route: 042
     Dates: start: 20060320, end: 20060320
  2. CARBOPLATIN [Suspect]
     Indication: NON-SMALL CELL LUNG CANCER
     Dosage: CYCLE 2 DAY 1. THERAPY START DATE 27-FEB-06.
     Route: 042
     Dates: start: 20060320, end: 20060320
  3. DOCETAXEL [Suspect]
     Indication: NON-SMALL CELL LUNG CANCER
     Dosage: CYCLE 2 DAY 1. THERAPY START DATE 27-FEB-06.
     Route: 042
     Dates: start: 20060320, end: 20060320
  4. PREDNISONE [Concomitant]
  5. LIPITOR [Concomitant]
  6. SOTALOL HCL [Concomitant]
  7. LOTREL [Concomitant]
  8. ECOTRIN [Concomitant]
  9. CENTRUM [Concomitant]
  10. ALLEGRA [Concomitant]
  11. APAP + OXYCODONE [Concomitant]
  12. MAGNESIUM OXIDE [Concomitant]
  13. CALCIUM + VITAMIN D [Concomitant]
  14. HYDROCHLOROTHIAZIDE [Concomitant]
  15. PHENERGAN HCL [Concomitant]
  16. DEXAMETHASONE [Concomitant]
  17. PALONOSETRON [Concomitant]
  18. IMODIUM [Concomitant]
  19. SENOKOT [Concomitant]
  20. MEGACE [Concomitant]

REACTIONS (2)
  - DEHYDRATION [None]
  - RENAL FAILURE ACUTE [None]
